FAERS Safety Report 10467075 (Version 1)
Quarter: 2014Q3

REPORT INFORMATION
  Report Type: Spontaneous
  Country: US (occurrence: None)
  Receive Date: 20140919
  Receipt Date: 20140919
  Transmission Date: 20150326
  Serious: Yes (Other)
  Sender: FDA-Public Use
  Company Number: None

PATIENT
  Sex: Female
  Weight: 71.22 kg

DRUGS (1)
  1. PLAQUENIL [Suspect]
     Active Substance: HYDROXYCHLOROQUINE SULFATE
     Indication: SCLERODERMA
     Route: 048
     Dates: start: 2010

REACTIONS (6)
  - Hypophagia [None]
  - Product substitution issue [None]
  - Muscle atrophy [None]
  - Therapeutic response changed [None]
  - Weight decreased [None]
  - Activities of daily living impaired [None]

NARRATIVE: CASE EVENT DATE: 2010
